FAERS Safety Report 17763948 (Version 1)
Quarter: 2020Q2

REPORT INFORMATION
  Report Type: Spontaneous
  Country: US (occurrence: US)
  Receive Date: 20200510
  Receipt Date: 20200510
  Transmission Date: 20200714
  Serious: No
  Sender: FDA-Public Use
  Company Number: US-GLAXOSMITHKLINE-US2020AMR075549

PATIENT
  Sex: Female

DRUGS (1)
  1. VOLTAREN SCHMERZGEL FORTE GEL [Suspect]
     Active Substance: DICLOFENAC DIETHYLAMINE
     Indication: PRODUCT USED FOR UNKNOWN INDICATION
     Dosage: UNK

REACTIONS (4)
  - Application site erythema [Unknown]
  - Application site warmth [Unknown]
  - Therapeutic response unexpected [Unknown]
  - Application site vesicles [Unknown]
